FAERS Safety Report 12758094 (Version 2)
Quarter: 2016Q3

REPORT INFORMATION
  Report Type: Report from Study
  Country: DE (occurrence: DE)
  Receive Date: 20160919
  Receipt Date: 20160919
  Transmission Date: 20161109
  Serious: Yes (Hospitalization)
  Sender: FDA-Public Use
  Company Number: DE-TEVA-686189ACC

PATIENT
  Sex: Male

DRUGS (9)
  1. PRIVIGEN [Concomitant]
     Active Substance: HUMAN IMMUNOGLOBULIN G
     Indication: SECONDARY IMMUNODEFICIENCY
     Route: 042
  2. BENDAMUSTINE HYDROCHLORIDE. [Suspect]
     Active Substance: BENDAMUSTINE HYDROCHLORIDE
     Indication: PLASMA CELL MYELOMA
     Dosage: (2 DOSES OF 1ST CYCLE)
     Route: 042
     Dates: start: 20160728, end: 20160804
  3. CARFILZOMIB [Suspect]
     Active Substance: CARFILZOMIB
     Indication: PLASMA CELL MYELOMA
     Dosage: 20 MG/M^2 + 27 MG/M^2, (C1D8)
     Route: 042
     Dates: start: 20160728, end: 20160804
  4. INSULIN HUMAN [Concomitant]
     Active Substance: INSULIN HUMAN
     Indication: DIABETES MELLITUS
     Dosage: 12-5-10 I.E
     Route: 058
  5. MIRTAZAPINE. [Concomitant]
     Active Substance: MIRTAZAPINE
     Indication: DEPRESSION
     Dosage: 7.5 MILLIGRAM DAILY;
     Route: 048
  6. ZOMETA [Concomitant]
     Active Substance: ZOLEDRONIC ACID
     Indication: BONE DISORDER
     Route: 042
  7. DEXAMETHASONE. [Suspect]
     Active Substance: DEXAMETHASONE
     Indication: PLASMA CELL MYELOMA
     Dosage: (3 DOSES OF 1ST CYCLE)
     Route: 048
     Dates: start: 20160728, end: 20160804
  8. PANTOPRAZOLE [Concomitant]
     Active Substance: PANTOPRAZOLE SODIUM
     Indication: PROPHYLAXIS
     Dosage: 80 MILLIGRAM DAILY;
     Route: 048
  9. ACIC                               /00587301/ [Concomitant]
     Indication: ANTIVIRAL PROPHYLAXIS
     Dosage: 800 MILLIGRAM DAILY;
     Route: 048

REACTIONS (1)
  - Atrial fibrillation [Recovering/Resolving]

NARRATIVE: CASE EVENT DATE: 20160811
